FAERS Safety Report 5328597-8 (Version None)
Quarter: 2007Q2

REPORT INFORMATION
  Report Type: 
  Country: None (occurrence: None)
  Receive Date: 20070514
  Receipt Date: 20070419
  Transmission Date: 20071010
  Serious: Yes (Death, Hospitalization)
  Sender: FDA-Public Use
  Company Number: 2007JP000817

PATIENT
  Age: 72 Year
  Sex: Female
  Weight: 35.3 kg

DRUGS (12)
  1. PROGRAF [Suspect]
     Indication: RHEUMATOID ARTHRITIS
     Dosage: SEE IMAGE
     Route: 048
     Dates: end: 20061221
  2. PROGRAF [Suspect]
     Indication: RHEUMATOID ARTHRITIS
     Dosage: SEE IMAGE
     Route: 048
     Dates: start: 20061222, end: 20070209
  3. PROGRAF [Suspect]
     Indication: RHEUMATOID ARTHRITIS
     Dosage: SEE IMAGE
     Route: 048
     Dates: start: 20060804
  4. BREDININ(MIZORIBINE) PER ORAL NOS [Suspect]
     Indication: RHEUMATOID ARTHRITIS
     Dosage: 5 MG, /D, ORAL
     Route: 048
     Dates: end: 20070216
  5. RIMATIL(BUCILLAMINE) PER ORAL NOS [Suspect]
     Indication: RHEUMATOID ARTHRITIS
     Dosage: SEE IMAGE
     Route: 048
     Dates: start: 20061027, end: 20070111
  6. RIMATIL(BUCILLAMINE) PER ORAL NOS [Suspect]
     Indication: RHEUMATOID ARTHRITIS
     Dosage: SEE IMAGE
     Route: 048
     Dates: start: 20070112, end: 20070209
  7. PREDNISOLONE [Concomitant]
  8. NABOAL [Concomitant]
  9. ONEALFA (ALFACALCIDOL) [Concomitant]
  10. SELBEX (TEPRENONE) [Concomitant]
  11. GASTER D [Concomitant]
  12. ISONIAZID [Concomitant]

REACTIONS (6)
  - ANOREXIA [None]
  - CONDITION AGGRAVATED [None]
  - HEART RATE INCREASED [None]
  - HERPES ZOSTER [None]
  - INTERSTITIAL LUNG DISEASE [None]
  - MULTI-ORGAN FAILURE [None]
